FAERS Safety Report 16984693 (Version 2)
Quarter: 2020Q1

REPORT INFORMATION
  Report Type: Spontaneous
  Country: US (occurrence: US)
  Receive Date: 20191101
  Receipt Date: 20200114
  Transmission Date: 20200409
  Serious: Yes (Other)
  Sender: FDA-Public Use
  Company Number: US-SA-2019SA300525

PATIENT
  Age: 55 Year
  Sex: Female
  Weight: 95.25 kg

DRUGS (10)
  1. NEOSAR [Concomitant]
     Active Substance: CYCLOPHOSPHAMIDE
     Indication: BREAST CANCER FEMALE
     Dosage: UNK UNK, Q3W,PLAINTIFF DOES NOT RECALL THE DOSAGE OF TAXOTERE
     Route: 065
     Dates: start: 2010, end: 2010
  2. NEOSAR [Concomitant]
     Active Substance: CYCLOPHOSPHAMIDE
     Dosage: UNK UNK, Q3W,PLAINTIFF DOES NOT RECALL THE DOSAGE OF TAXOTERE
     Route: 065
     Dates: start: 20100908, end: 20100908
  3. ADRIAMYCIN [Concomitant]
     Active Substance: DOXORUBICIN HYDROCHLORIDE
     Dosage: UNK UNK, Q3W,PLAINTIFF DOES NOT RECALL THE DOSAGE OF TAXOTERE
     Route: 065
     Dates: start: 20100908, end: 20100908
  4. FEMARA [Concomitant]
     Active Substance: LETROZOLE
     Dosage: UNK
     Dates: start: 2010
  5. CYTOXAN [Concomitant]
     Active Substance: CYCLOPHOSPHAMIDE
     Dosage: UNK UNK, Q3W,PLAINTIFF DOES NOT RECALL THE DOSAGE OF TAXOTERE
     Route: 065
     Dates: start: 20100908, end: 20100908
  6. TAXOTERE [Suspect]
     Active Substance: DOCETAXEL
     Dosage: UNK UNK, Q3W,PLAINTIFF DOES NOT RECALL THE DOSAGE OF TAXOTERE
     Route: 042
     Dates: start: 20100908, end: 20100908
  7. CYTOXAN [Concomitant]
     Active Substance: CYCLOPHOSPHAMIDE
     Indication: BREAST CANCER FEMALE
     Dosage: UNK UNK, UNK,PLAINTIFF DOES NOT RECALL THE DOSAGE OF TAXOTERE
     Route: 065
     Dates: start: 2010, end: 2010
  8. ADRIAMYCIN [Concomitant]
     Active Substance: DOXORUBICIN HYDROCHLORIDE
     Indication: BREAST CANCER FEMALE
     Dosage: UNK UNK, Q3W,PLAINTIFF DOES NOT RECALL THE DOSAGE OF TAXOTERE
     Dates: start: 2010, end: 2010
  9. FEMARA [Concomitant]
     Active Substance: LETROZOLE
     Dosage: UNK
     Dates: start: 1994
  10. TAXOTERE [Suspect]
     Active Substance: DOCETAXEL
     Indication: BREAST CANCER FEMALE
     Dosage: UNK UNK, Q3W,PLAINTIFF DOES NOT RECALL THE DOSAGE OF TAXOTERE
     Route: 042
     Dates: start: 2010, end: 2010

REACTIONS (2)
  - Alopecia [Recovering/Resolving]
  - Psychological trauma [Unknown]

NARRATIVE: CASE EVENT DATE: 201003
